FAERS Safety Report 17553298 (Version 1)
Quarter: 2020Q1

REPORT INFORMATION
  Report Type: Spontaneous
  Country: IT (occurrence: IT)
  Receive Date: 20200317
  Receipt Date: 20200317
  Transmission Date: 20200409
  Serious: Yes (Other)
  Sender: FDA-Public Use
  Company Number: IT-TEVA-2020-IT-1203697

PATIENT
  Age: 56 Year
  Sex: Female

DRUGS (6)
  1. TRASTUZUMAB. [Suspect]
     Active Substance: TRASTUZUMAB
     Dosage: FOR SCHEDULED 11 CYCLES ADMINISTERED WITH PACLITAXEL, WITH AN INTER-CYCLE INTERVAL OF 21 DAYS
     Route: 065
  2. TRASTUZUMAB. [Suspect]
     Active Substance: TRASTUZUMAB
     Dosage: FOR SCHEDULED 13 CYCLES ADMINISTERED WITH PACLITAXEL, WITH AN INTER-CYCLE INTERVAL OF 21 DAYS
     Route: 065
  3. CYCLOPHOSPHAMIDE. [Concomitant]
     Active Substance: CYCLOPHOSPHAMIDE
     Indication: BREAST CANCER
     Dosage: FOUR CYCLES ADMINISTERED WITH EPIRUBICIN, WITH AN INTER-CYCLE INTERVAL OF 21 DAYS
     Route: 065
  4. TRASTUZUMAB. [Suspect]
     Active Substance: TRASTUZUMAB
     Indication: BREAST CANCER
     Dosage: FOR THE FIRST WEEK ADMINISTERED WITH PACLITAXEL
     Route: 065
  5. PACLITAXEL. [Concomitant]
     Active Substance: PACLITAXEL
     Indication: BREAST CANCER
     Dosage: ADMINISTERED WITH TRASTUZUMAB FOR SCHEDULED 24 CYCLES WITH AN INTER-CYCLE INTERVAL OF 21 DAYS
     Route: 065
  6. EPIRUBICIN [Suspect]
     Active Substance: EPIRUBICIN
     Indication: BREAST CANCER
     Dosage: FOUR CYCLES ADMINISTERED WITH CYCLOPHOSPHAMIDE, WITH AN INTER-CYCLE INTERVAL OF 21 DAYS
     Route: 065

REACTIONS (1)
  - Cardiac dysfunction [Recovering/Resolving]
